FAERS Safety Report 8837017 (Version 2)
Quarter: 2012Q4

REPORT INFORMATION
  Report Type: 
  Country: US (occurrence: US)
  Receive Date: 20121012
  Receipt Date: 20121102
  Transmission Date: 20130627
  Serious: Yes (Life-Threatening, Hospitalization, Other)
  Sender: FDA-Public Use
  Company Number: US-COVIDIEN/TYCO HEALTHCARE/MALLINCKRODT-T201203594

PATIENT
  Age: 53 None
  Sex: Male
  Weight: 117.4 kg

DRUGS (3)
  1. OPTIRAY [Suspect]
     Indication: COMPUTERISED TOMOGRAM
     Dosage: 100 ml, single
     Route: 042
     Dates: start: 20120902, end: 20120902
  2. MORPHINE [Concomitant]
     Indication: PAIN
     Dosage: 5 mg, single
     Route: 040
     Dates: start: 20120902, end: 20120902
  3. ROCEPHIN [Concomitant]
     Indication: ABSCESS
     Dosage: 1 g, single
     Route: 042
     Dates: start: 20120902, end: 20120902

REACTIONS (7)
  - Anaphylactic reaction [Recovered/Resolved]
  - Cardio-respiratory arrest [Recovered/Resolved]
  - Metabolic acidosis [Unknown]
  - Respiratory acidosis [Unknown]
  - Type 2 diabetes mellitus [Not Recovered/Not Resolved]
  - Leukocytosis [Recovering/Resolving]
  - Hypertension [Not Recovered/Not Resolved]
